FAERS Safety Report 8051125-3 (Version None)
Quarter: 2012Q1

REPORT INFORMATION
  Report Type: 
  Country: None (occurrence: None)
  Receive Date: 20120117
  Receipt Date: 20120112
  Transmission Date: 20120608
  Serious: Yes (Death)
  Sender: FDA-Public Use
  Company Number: PHHY2012MY002772

PATIENT
  Sex: Female

DRUGS (2)
  1. GLEEVEC [Suspect]
     Indication: GASTROINTESTINAL STROMAL TUMOUR
     Dosage: 300 MG, DAILY
     Dates: start: 20080417
  2. GLEEVEC [Suspect]
     Dosage: 400 MG, DAILY
     Dates: end: 20100601

REACTIONS (1)
  - DEATH [None]
